FAERS Safety Report 5786787-4 (Version None)
Quarter: 2008Q2

REPORT INFORMATION
  Report Type: 
  Country: None (occurrence: None)
  Receive Date: 20080618
  Receipt Date: 20080609
  Transmission Date: 20081010
  Serious: Yes (Hospitalization, Disabling)
  Sender: FDA-Public Use
  Company Number: ADE2008-0224

PATIENT
  Age: 66 Year
  Sex: Male
  Weight: 75.5 kg

DRUGS (5)
  1. SIMVASTATIN [Suspect]
     Indication: HYPERCHOLESTEROLAEMIA
     Dosage: 40MG - PO
     Route: 048
     Dates: start: 20041027
  2. BISOPROLOL FUMARATE [Concomitant]
  3. CLOPIDOGREL BISULFATE [Concomitant]
  4. LANSOPRAZOLE [Concomitant]
  5. RAMIPRIL [Concomitant]

REACTIONS (4)
  - CARPAL TUNNEL SYNDROME [None]
  - HIATUS HERNIA [None]
  - MUSCULOSKELETAL PAIN [None]
  - SYNCOPE VASOVAGAL [None]
